FAERS Safety Report 5340742-7 (Version None)
Quarter: 2007Q2

REPORT INFORMATION
  Report Type: 
  Country: None (occurrence: None)
  Receive Date: 20070405
  Receipt Date: 20070105
  Transmission Date: 20071010
  Serious: No
  Sender: FDA-Public Use
  Company Number: US200701000980

PATIENT
  Age: 57 Year
  Sex: Female

DRUGS (2)
  1. CYMBALTA [Suspect]
     Indication: PANIC DISORDER
     Dosage: 60 MG EACH EVENING ORAL
     Route: 048
     Dates: start: 20060101
  2. CLONIDINE [Concomitant]

REACTIONS (3)
  - CHILLS [None]
  - MUSCLE TWITCHING [None]
  - MYALGIA [None]
